FAERS Safety Report 17836533 (Version 1)
Quarter: 2020Q2

REPORT INFORMATION
  Report Type: Report from Study
  Country: US (occurrence: US)
  Receive Date: 20200528
  Receipt Date: 20200528
  Transmission Date: 20200714
  Serious: Yes (Hospitalization)
  Sender: FDA-Public Use
  Company Number: US-TEVA-2020-US-1240086

PATIENT
  Sex: Female

DRUGS (2)
  1. COPAXONE [Suspect]
     Active Substance: GLATIRAMER ACETATE
     Dates: start: 2015, end: 2015
  2. COPAXONE [Suspect]
     Active Substance: GLATIRAMER ACETATE
     Dates: end: 2015

REACTIONS (6)
  - Feeling abnormal [Recovered/Resolved]
  - Diarrhoea [Unknown]
  - Swelling face [Unknown]
  - Hyperhidrosis [Unknown]
  - Dehydration [Unknown]
  - Vomiting [Unknown]

NARRATIVE: CASE EVENT DATE: 2015
